FAERS Safety Report 8924649 (Version 1)
Quarter: 2012Q4

REPORT INFORMATION
  Report Type: Spontaneous
  Country: US (occurrence: None)
  Receive Date: 20121116
  Receipt Date: 20121116
  Transmission Date: 20130627
  Serious: Yes (Other)
  Sender: FDA-Public Use
  Company Number: 12-00002

PATIENT
  Age: 61 Year
  Sex: Female
  Weight: 35.38 kg

DRUGS (6)
  1. ASTHMANEFRIN [Suspect]
     Indication: BREATHING DIFFICULT
     Dosage: 1 inhalation once 54
     Route: 055
     Dates: start: 20121112
  2. PROAIR [Concomitant]
  3. XOPENEX [Concomitant]
  4. QVAR [Concomitant]
  5. HOME OXYGEN [Concomitant]
  6. VITAMINS [Concomitant]

REACTIONS (3)
  - Throat irritation [None]
  - Haemoptysis [None]
  - Product quality issue [None]
